FAERS Safety Report 16226714 (Version 1)
Quarter: 2019Q2

REPORT INFORMATION
  Report Type: Spontaneous
  Country: GB (occurrence: GB)
  Receive Date: 20190423
  Receipt Date: 20190423
  Transmission Date: 20190711
  Serious: Yes (Other)
  Sender: FDA-Public Use
  Company Number: GB-TEVA-2018-GB-908035

PATIENT
  Age: 55 Year
  Sex: Female
  Weight: 72 kg

DRUGS (15)
  1. CLARITHROMYCIN. [Concomitant]
     Active Substance: CLARITHROMYCIN
     Dosage: 1000 MILLIGRAM DAILY;
  2. LISINOPRIL. [Concomitant]
     Active Substance: LISINOPRIL
  3. OSELTAMIVIR [Concomitant]
     Active Substance: OSELTAMIVIR
     Dosage: 150 MILLIEQUIVALENTS DAILY;
  4. SYMBICORT [Concomitant]
     Active Substance: BUDESONIDE\FORMOTEROL FUMARATE DIHYDRATE
     Dosage: 200/6
     Route: 055
  5. PREDNISOLONE. [Concomitant]
     Active Substance: PREDNISOLONE
     Indication: LOWER RESPIRATORY TRACT INFECTION
  6. FEMSEVEN CONTI [Concomitant]
     Active Substance: ESTRADIOL HEMIHYDRATE\LEVONORGESTREL
     Indication: HORMONE REPLACEMENT THERAPY
     Route: 062
  7. ADCAL (CALCIUM CARBONATE) [Concomitant]
     Active Substance: CALCIUM CARBONATE
  8. IPRATROPIUM BROMIDE. [Concomitant]
     Active Substance: IPRATROPIUM BROMIDE
  9. AZITHROMYCIN ANHYDROUS. [Concomitant]
     Active Substance: AZITHROMYCIN ANHYDROUS
  10. AMOXICILLIN. [Concomitant]
     Active Substance: AMOXICILLIN
     Dosage: 1500 MILLIGRAM DAILY;
  11. CIPROFLOXACIN. [Suspect]
     Active Substance: CIPROFLOXACIN
     Indication: LUNG INFECTION PSEUDOMONAL
     Dosage: 1500 MILLIGRAM DAILY;
     Route: 048
     Dates: start: 20180115, end: 20180129
  12. CARBOCISTEINE [Concomitant]
     Active Substance: CARBOCYSTEINE
  13. SALBUTAMOL [Concomitant]
     Active Substance: ALBUTEROL
  14. MOMETASONE FUROATE. [Concomitant]
     Active Substance: MOMETASONE FUROATE
  15. TIOTROPIUM [Concomitant]
     Active Substance: TIOTROPIUM
     Route: 055

REACTIONS (4)
  - Muscle twitching [Unknown]
  - Tendon pain [Not Recovered/Not Resolved]
  - Myalgia [Unknown]
  - Paraesthesia [Unknown]

NARRATIVE: CASE EVENT DATE: 2018
